FAERS Safety Report 4904451-8 (Version None)
Quarter: 2006Q1

REPORT INFORMATION
  Report Type: 
  Country: None (occurrence: None)
  Receive Date: 20060208
  Receipt Date: 20050907
  Transmission Date: 20060701
  Serious: No
  Sender: FDA-Public Use
  Company Number: US-GLAXOSMITHKLINE-A0573333A

PATIENT
  Age: 40 Year
  Sex: Female

DRUGS (3)
  1. PAXIL [Suspect]
     Indication: DEPRESSION
     Dosage: 20MG PER DAY
     Route: 048
     Dates: start: 20050701, end: 20050701
  2. PAXIL CR [Suspect]
     Indication: DEPRESSION
     Dosage: 25MG PER DAY
     Route: 048
     Dates: start: 20050701, end: 20050801
  3. SYNTHROID [Concomitant]

REACTIONS (8)
  - CONFUSIONAL STATE [None]
  - CRYING [None]
  - DEPRESSION [None]
  - EMOTIONAL DISORDER [None]
  - FEELING ABNORMAL [None]
  - ILL-DEFINED DISORDER [None]
  - IMPAIRED DRIVING ABILITY [None]
  - MEMORY IMPAIRMENT [None]
